FAERS Safety Report 7085630-3 (Version None)
Quarter: 2010Q4

REPORT INFORMATION
  Report Type: 
  Country: None (occurrence: None)
  Receive Date: 20101105
  Receipt Date: 20101101
  Transmission Date: 20110411
  Serious: Yes (Death, Hospitalization, Other)
  Sender: FDA-Public Use
  Company Number: US-ASTRAZENECA-2010SE32009

PATIENT
  Age: 23823 Day
  Sex: Female
  Weight: 90 kg

DRUGS (23)
  1. BETALOC ZOK [Suspect]
     Route: 048
     Dates: start: 20100529, end: 20100531
  2. SD-6010; PLACEBO [Suspect]
     Indication: OSTEOARTHRITIS
     Dates: start: 20090702, end: 20100531
  3. VERAPAMIL [Concomitant]
     Route: 048
     Dates: start: 19990101, end: 20100531
  4. MOLSIDOMIN ^HEUMANN^ [Concomitant]
     Route: 048
     Dates: start: 20040101, end: 20100531
  5. PERINDOPRIL [Concomitant]
     Route: 048
     Dates: start: 20040101, end: 20100531
  6. ACETYLSALICYLIC ACID [Concomitant]
     Route: 048
     Dates: start: 19970101, end: 20100611
  7. DIGOXIN [Concomitant]
     Route: 048
     Dates: start: 19990101, end: 20100519
  8. GLYCERYLNITRAT [Concomitant]
     Route: 048
     Dates: start: 20060101, end: 20100531
  9. MOXONIDINE [Concomitant]
     Route: 048
     Dates: start: 20060101, end: 20100531
  10. PIROXICAM [Concomitant]
     Route: 048
     Dates: start: 20070104, end: 20100603
  11. DIACEREIN [Concomitant]
     Route: 048
     Dates: start: 20070608, end: 20100603
  12. ENOXAPARIN SODIUM [Concomitant]
     Route: 058
     Dates: start: 20100601, end: 20100618
  13. SPIRONOLACTONE [Concomitant]
     Route: 042
     Dates: start: 20100601, end: 20100618
  14. SPIRONOLACTONE [Concomitant]
     Route: 048
     Dates: start: 20100618
  15. KALNORMIN [Concomitant]
     Dates: start: 20100603, end: 20100618
  16. FUROSEMIDE [Concomitant]
     Route: 042
     Dates: start: 20100601, end: 20100618
  17. FUROSEMIDE [Concomitant]
     Route: 048
     Dates: start: 20100618
  18. PARACETAMOL [Concomitant]
     Route: 048
     Dates: start: 20100603, end: 20100618
  19. AMBROXOL [Concomitant]
     Route: 048
     Dates: start: 20100611, end: 20100618
  20. BISULEPIN [Concomitant]
     Route: 048
     Dates: start: 20100619
  21. AMLODIPINE [Concomitant]
     Route: 048
     Dates: start: 20100617
  22. IMIPENEM [Concomitant]
     Route: 042
     Dates: start: 20100613, end: 20100616
  23. PLASMALYTE 56 IN 5% DEXTROSE [Concomitant]
     Dates: start: 20100611, end: 20100618

REACTIONS (21)
  - ANAEMIA [None]
  - ARRHYTHMIA [None]
  - ATRIAL FLUTTER [None]
  - BRADYARRHYTHMIA [None]
  - BRONCHOPNEUMONIA [None]
  - CARDIAC ARREST [None]
  - CARDIAC FAILURE CONGESTIVE [None]
  - COAGULOPATHY [None]
  - DYSPNOEA [None]
  - HEPATOSPLENOMEGALY [None]
  - HYPERTENSIVE CRISIS [None]
  - HYPOTENSION [None]
  - PULMONARY HYPERTENSION [None]
  - PULMONARY OEDEMA [None]
  - RASH [None]
  - RENAL FAILURE [None]
  - SEPSIS [None]
  - SUPRAVENTRICULAR TACHYCARDIA [None]
  - SYSTEMIC LUPUS ERYTHEMATOSUS [None]
  - THROMBOCYTOPENIA [None]
  - VOMITING [None]
